FAERS Safety Report 11441771 (Version 3)
Quarter: 2015Q4

REPORT INFORMATION
  Report Type: Spontaneous
  Country: PE (occurrence: PE)
  Receive Date: 20150901
  Receipt Date: 20151230
  Transmission Date: 20160304
  Serious: Yes (Other)
  Sender: FDA-Public Use
  Company Number: PE-PFIZER INC-2015265936

PATIENT
  Age: 58 Year
  Sex: Female

DRUGS (1)
  1. XALATAN [Suspect]
     Active Substance: LATANOPROST
     Indication: ANGLE CLOSURE GLAUCOMA
     Dosage: ONE DROP EACH EYE , DAILY
     Route: 047

REACTIONS (7)
  - Bedridden [Unknown]
  - Glaucoma [Unknown]
  - Product quality issue [Unknown]
  - Condition aggravated [Unknown]
  - Pyrexia [Unknown]
  - General physical health deterioration [Unknown]
  - Incorrect dose administered [Unknown]
